FAERS Safety Report 15092690 (Version 1)
Quarter: 2018Q2

REPORT INFORMATION
  Report Type: Spontaneous
  Country: US (occurrence: US)
  Receive Date: 20180608
  Receipt Date: 20180608
  Transmission Date: 20180711
  Serious: No
  Sender: FDA-Public Use
  Company Number: None

PATIENT
  Age: 60 Year
  Sex: Female

DRUGS (17)
  1. IMURAN [Concomitant]
     Active Substance: AZATHIOPRINE
  2. FAMOTIDINE. [Concomitant]
     Active Substance: FAMOTIDINE
  3. K-TAB [Concomitant]
     Active Substance: POTASSIUM CHLORIDE
  4. CYMBALTA [Concomitant]
     Active Substance: DULOXETINE HYDROCHLORIDE
  5. REVATIO [Concomitant]
     Active Substance: SILDENAFIL CITRATE
  6. TRENTAL [Concomitant]
     Active Substance: PENTOXIFYLLINE
  7. NEURONTIN [Concomitant]
     Active Substance: GABAPENTIN
  8. PREDNISONE. [Concomitant]
     Active Substance: PREDNISONE
  9. PRED FORTE OPHT DROP [Concomitant]
  10. DENTADENTAL CREAM [Concomitant]
  11. LETAIRIS [Suspect]
     Active Substance: AMBRISENTAN
     Indication: SCLERODERMA
     Route: 048
     Dates: start: 201602
  12. ZOFRAN [Concomitant]
     Active Substance: ONDANSETRON HYDROCHLORIDE
  13. PILOCARPINE. [Concomitant]
     Active Substance: PILOCARPINE
  14. LASIX [Concomitant]
     Active Substance: FUROSEMIDE
  15. PLAQUENIL [Concomitant]
     Active Substance: HYDROXYCHLOROQUINE SULFATE
  16. RESTASIS OPHT DROP [Concomitant]
  17. LEVOTHYROXINE. [Concomitant]
     Active Substance: LEVOTHYROXINE

REACTIONS (4)
  - Diarrhoea [None]
  - Nausea [None]
  - Vomiting [None]
  - Abdominal pain [None]

NARRATIVE: CASE EVENT DATE: 20180517
